FAERS Safety Report 5278995-6 (Version None)
Quarter: 2007Q1

REPORT INFORMATION
  Report Type: 
  Country: None (occurrence: None)
  Receive Date: 20070328
  Receipt Date: 20060929
  Transmission Date: 20070707
  Serious: Yes (Hospitalization)
  Sender: FDA-Public Use
  Company Number: US-AMGEN-US195320

PATIENT
  Sex: Female
  Weight: 63 kg

DRUGS (14)
  1. NEULASTA [Suspect]
     Indication: CHEMOTHERAPY
     Route: 058
     Dates: start: 20060921
  2. CYCLOPHOSPHAMIDE [Concomitant]
     Route: 065
     Dates: start: 20060920
  3. DOXORUBICIN HYDROCHLORIDE [Concomitant]
     Route: 065
     Dates: start: 20060920
  4. VINCRISTINE [Concomitant]
     Route: 065
     Dates: start: 20060920
  5. DEXAMETHASONE [Concomitant]
     Route: 065
     Dates: start: 20060920
  6. RITUXIMAB [Concomitant]
     Route: 065
     Dates: start: 20060920
  7. ENALAPRIL MALEATE [Concomitant]
     Route: 065
  8. LEXAPRO [Concomitant]
     Route: 065
  9. SYNTHROID [Concomitant]
     Route: 065
  10. LEVAQUIN [Concomitant]
     Route: 065
  11. CALCIUM [Concomitant]
     Route: 065
  12. MULTIVIT [Concomitant]
     Route: 065
  13. TYLENOL [Concomitant]
     Route: 065
  14. PREDNISONE [Concomitant]
     Route: 065

REACTIONS (1)
  - FEBRILE NEUTROPENIA [None]
